FAERS Safety Report 7654337-3 (Version None)
Quarter: 2011Q3

REPORT INFORMATION
  Report Type: 
  Country: None (occurrence: None)
  Receive Date: 20110728
  Receipt Date: 20110713
  Transmission Date: 20111222
  Serious: Yes (Life-Threatening, Hospitalization, Disabling)
  Sender: FDA-Public Use
  Company Number: AUR-APL-2011-04246

PATIENT
  Age: 95 Year
  Sex: Male

DRUGS (6)
  1. TAMSULOSIN HCL [Concomitant]
  2. AMLODIPINE [Concomitant]
  3. SIMVASTATIN [Suspect]
     Indication: HYPERCHOLESTEROLAEMIA
     Dosage: 40 MG (40 MG, 1 IN 1 D),ORAL
     Route: 048
     Dates: start: 20101231, end: 20110706
  4. ASPIRIN [Concomitant]
  5. SERTRALINE HYDROCHLORIDE [Concomitant]
  6. OMEPRAZOLE [Concomitant]

REACTIONS (4)
  - RHABDOMYOLYSIS [None]
  - LIMB INJURY [None]
  - FALL [None]
  - DYSSTASIA [None]
